FAERS Safety Report 18747619 (Version 7)
Quarter: 2021Q3

REPORT INFORMATION
  Report Type: Report from Study
  Country: US (occurrence: US)
  Receive Date: 20210115
  Receipt Date: 20210804
  Transmission Date: 20211014
  Serious: Yes (Hospitalization)
  Sender: FDA-Public Use
  Company Number: US-GLAXOSMITHKLINE-US2021AMR002694

PATIENT
  Age: 73 Year
  Sex: Male

DRUGS (1)
  1. BELANTAMAB MAFODOTIN. [Suspect]
     Active Substance: BELANTAMAB MAFODOTIN
     Indication: PRODUCT USED FOR UNKNOWN INDICATION
     Dosage: UNK
     Dates: end: 20210802

REACTIONS (4)
  - Visual acuity reduced [Unknown]
  - Night blindness [Unknown]
  - Hospitalisation [Unknown]
  - Keratopathy [Unknown]

NARRATIVE: CASE EVENT DATE: 20201116
